FAERS Safety Report 19788789 (Version 5)
Quarter: 2022Q1

REPORT INFORMATION
  Report Type: Spontaneous
  Country: CA (occurrence: CA)
  Receive Date: 20210904
  Receipt Date: 20220113
  Transmission Date: 20220423
  Serious: Yes (Other)
  Sender: FDA-Public Use
  Company Number: CA-CELLTRION INC.-2021CA012103

PATIENT

DRUGS (21)
  1. INFLECTRA [Suspect]
     Active Substance: INFLIXIMAB-DYYB
     Indication: Colitis ulcerative
     Dosage: 500 MG AT 0, 2, 6 WEEKS, THEN EVERY 4 WEEKS
     Route: 042
     Dates: start: 20180606
  2. INFLECTRA [Suspect]
     Active Substance: INFLIXIMAB-DYYB
     Dosage: 700 MG, EVERY 4 WEEKS
     Route: 042
     Dates: start: 20180606
  3. INFLECTRA [Suspect]
     Active Substance: INFLIXIMAB-DYYB
     Dosage: 600 MG EVERY 4 WEEKS
     Route: 042
     Dates: start: 20190521, end: 20200325
  4. INFLECTRA [Suspect]
     Active Substance: INFLIXIMAB-DYYB
     Dosage: 700 MG, EVERY 4 WEEKS
     Route: 042
     Dates: start: 20200422
  5. INFLECTRA [Suspect]
     Active Substance: INFLIXIMAB-DYYB
     Dosage: 700 MG, EVERY 4 WEEK
     Route: 042
     Dates: start: 20210727
  6. INFLECTRA [Suspect]
     Active Substance: INFLIXIMAB-DYYB
     Dosage: 700 MG, EVERY 4 WEEKS
     Route: 042
     Dates: start: 20210727
  7. INFLECTRA [Suspect]
     Active Substance: INFLIXIMAB-DYYB
     Dosage: 700 MG, EVERY 4 WEEKS
     Route: 042
     Dates: start: 20210917
  8. ALFUZOSIN [Concomitant]
     Active Substance: ALFUZOSIN
     Dosage: 10 MG, 1X/DAY
  9. CORTISONE [Concomitant]
     Active Substance: CORTISONE
     Dosage: UNK
     Dates: start: 201911
  10. JAMP CALCIUM [Concomitant]
     Dosage: 500 MG, 1X/DAY
  11. CHOLECALCIFEROL [Concomitant]
     Active Substance: CHOLECALCIFEROL
     Dosage: 10000 IU, WEEKLY
  12. JAMP NYSTATIN [Concomitant]
     Dosage: UNK, 4X/DAY (RINSE MOUTH QID FOR 7 DAYS)
     Route: 048
  13. LORAZEPAM [Concomitant]
     Active Substance: LORAZEPAM
     Indication: Insomnia
     Dosage: UNK, 1/2 TABLET OF 0.5MG HS PRN
  14. BISOPROLOL FUMARATE [Concomitant]
     Active Substance: BISOPROLOL FUMARATE
     Dosage: UNK
     Dates: start: 2019
  15. NYSTATIN [NYSTATIN;ZINC OXIDE] [Concomitant]
     Dosage: UNK, 4X/DAY (RINSE MOUTH QID FOR 7 DAYS)
     Route: 048
  16. PEPTIDES NOS [Concomitant]
     Dosage: UNK, 1X/DAY (1 BOTTLE)
  17. SPIRIVA [Concomitant]
     Active Substance: TIOTROPIUM BROMIDE MONOHYDRATE
     Dosage: 18 UG, 1X/DAY
  18. SANDOZ ALENDRONATE/CHOLECALCIFEROL [Concomitant]
     Indication: Osteoporosis
     Dosage: 70 MG
  19. SANDOZ ALENDRONATE/CHOLECALCIFEROL [Concomitant]
     Dosage: 70 MG, WEEKLY
  20. TEVA AZATHIOPRINE [Concomitant]
     Dosage: 100 MG, 1X/DAY
  21. PREGABALIN [Concomitant]
     Active Substance: PREGABALIN
     Dosage: 50 MG OD AT NOON AND 150 MG BID AT 7 AM AND 9 PM

REACTIONS (17)
  - Cellulitis [Unknown]
  - Erythema [Not Recovered/Not Resolved]
  - Oedema [Unknown]
  - Body temperature abnormal [Unknown]
  - Discharge [Unknown]
  - Oedema peripheral [Unknown]
  - Arthralgia [Unknown]
  - Peripheral swelling [Unknown]
  - Condition aggravated [Unknown]
  - Secretion discharge [Unknown]
  - Wound [Unknown]
  - Skin discolouration [Unknown]
  - Excessive granulation tissue [Unknown]
  - Cellulite [Unknown]
  - Physical disability [Not Recovered/Not Resolved]
  - Off label use [Unknown]
  - Inappropriate schedule of product administration [Unknown]

NARRATIVE: CASE EVENT DATE: 20180606
